FAERS Safety Report 8153293-1 (Version None)
Quarter: 2012Q1

REPORT INFORMATION
  Report Type: 
  Country: None (occurrence: None)
  Receive Date: 20120221
  Receipt Date: 20120209
  Transmission Date: 20120608
  Serious: Yes (Other)
  Sender: FDA-Public Use
  Company Number: GB-ELI_LILLY_AND_COMPANY-GB201202003445

PATIENT
  Sex: Male

DRUGS (2)
  1. PROZAC [Suspect]
     Dosage: 40 MG, QD
  2. PROZAC [Suspect]
     Indication: DEPRESSION
     Dosage: 20 MG, QD

REACTIONS (11)
  - EPILEPSY [None]
  - VITAMIN B12 DEFICIENCY [None]
  - POLLAKIURIA [None]
  - SERUM FERRITIN DECREASED [None]
  - PALPITATIONS [None]
  - INSOMNIA [None]
  - YAWNING [None]
  - FATIGUE [None]
  - INTENTIONAL DRUG MISUSE [None]
  - VITAMIN D DEFICIENCY [None]
  - ANXIETY [None]
